FAERS Safety Report 7476420-8 (Version None)
Quarter: 2011Q2

REPORT INFORMATION
  Report Type: 
  Country: None (occurrence: None)
  Receive Date: 20110512
  Receipt Date: 20110506
  Transmission Date: 20111010
  Serious: Yes (Other)
  Sender: FDA-Public Use
  Company Number: US-PFIZER INC-2010072261

PATIENT
  Sex: Female
  Weight: 74.8 kg

DRUGS (23)
  1. CLARITIN [Concomitant]
     Dosage: 10 MG, 1X/DAY
  2. VENTOLIN [Concomitant]
     Dosage: 90 UG, AS NEEDED
  3. OMEPRAZOLE [Concomitant]
     Dosage: 20 MG, 2X/DAY
  4. SUDAFED 12 HOUR [Concomitant]
     Dosage: 30 MG, 2X/DAY
  5. TRAZODONE [Concomitant]
     Dosage: 50MG 2-3 TABLETS ONCE A DAY
  6. VICODIN [Concomitant]
     Dosage: 5/500
  7. ATIVAN [Concomitant]
     Indication: ANXIETY
     Dosage: 1 MG, AS NEEDED
  8. PATANOL [Concomitant]
     Dosage: UNK
     Route: 047
  9. LYRICA [Suspect]
     Indication: PAIN
  10. DIAZEPAM [Concomitant]
     Indication: BLOOD PRESSURE INCREASED
     Dosage: 2 MG, UNK
  11. DEPAKOTE [Concomitant]
     Dosage: 250 MG, 2X/DAY
  12. LYRICA [Suspect]
  13. PRAVASTATIN [Concomitant]
     Dosage: 80 MG, 1X/DAY
  14. PRAVASTATIN [Concomitant]
     Dosage: 80 MG, UNK
  15. FOSAMAX [Concomitant]
     Dosage: 70 MG, 1X/DAY
  16. LYRICA [Suspect]
     Indication: MYALGIA
  17. LYRICA [Suspect]
     Indication: TENDON PAIN
  18. ATIVAN [Concomitant]
     Dosage: 1 MG, UNK
  19. AMBIEN [Concomitant]
     Indication: INSOMNIA
     Dosage: 10 MG ONCE A DAY AS NEEDED
  20. PEPCID [Concomitant]
     Dosage: 20 MG, 2X/DAY
  21. LYRICA [Suspect]
     Indication: ARTHRALGIA
     Dosage: 150 MG, 2X/DAY
     Route: 048
     Dates: start: 20100301
  22. ADVAIR DISKUS 100/50 [Concomitant]
     Dosage: 239/21
  23. CALCIUM WITH VITAMIN D [Concomitant]
     Dosage: 2000 IU, 2X/DAY

REACTIONS (10)
  - WITHDRAWAL SYNDROME [None]
  - PAIN [None]
  - FEELING ABNORMAL [None]
  - INFLUENZA [None]
  - ARTHRALGIA [None]
  - ARTHRITIS [None]
  - INSOMNIA [None]
  - DECREASED APPETITE [None]
  - DISCOMFORT [None]
  - BEDRIDDEN [None]
